FAERS Safety Report 4608968-5 (Version None)
Quarter: 2005Q1

REPORT INFORMATION
  Report Type: 
  Country: None (occurrence: None)
  Receive Date: 20050310
  Receipt Date: 20050121
  Transmission Date: 20050727
  Serious: Yes (Hospitalization)
  Sender: FDA-Public Use
  Company Number: FUK050101MYT

PATIENT
  Age: 56 Year
  Sex: Male

DRUGS (3)
  1. MYTELASE [Suspect]
     Indication: MYASTHENIA GRAVIS
     Dosage: 20MG PO
     Route: 048
     Dates: start: 20041018, end: 20041101
  2. CAPROCIN INJ. (HEPARIN CALCIUM) [Concomitant]
  3. BAYASPIRIN (ASPIRIN) [Concomitant]

REACTIONS (6)
  - ALANINE AMINOTRANSFERASE INCREASED [None]
  - ASPARTATE AMINOTRANSFERASE INCREASED [None]
  - BLOOD BILIRUBIN INCREASED [None]
  - BLOOD LACTATE DEHYDROGENASE INCREASED [None]
  - DRUG INEFFECTIVE [None]
  - THYMECTOMY [None]
